FAERS Safety Report 23210485 (Version 4)
Quarter: 2024Q3

REPORT INFORMATION
  Report Type: Spontaneous
  Country: BR (occurrence: BR)
  Receive Date: 20231121
  Receipt Date: 20240814
  Transmission Date: 20241017
  Serious: Yes (Hospitalization, Other)
  Sender: CELLTRION
  Company Number: BR-CELLTRION INC.-2023BR001731

PATIENT

DRUGS (12)
  1. INFLIXIMAB [Suspect]
     Active Substance: INFLIXIMAB
     Indication: Crohn^s disease
     Dosage: 3 AMPOULES EVERY 2 MONTHS
     Route: 042
     Dates: start: 20220919
  2. INFLIXIMAB [Suspect]
     Active Substance: INFLIXIMAB
     Dosage: 3 AMPOULES EVERY 2 MONTHS
     Route: 042
     Dates: start: 20230910
  3. INFLIXIMAB [Suspect]
     Active Substance: INFLIXIMAB
     Dosage: UNK
     Route: 042
  4. INFLIXIMAB [Suspect]
     Active Substance: INFLIXIMAB
     Dosage: 6 AMPOULES EVERY 2 MONTHS
     Route: 042
     Dates: start: 20240514
  5. INFLIXIMAB [Suspect]
     Active Substance: INFLIXIMAB
     Dosage: UNK
     Route: 042
     Dates: start: 20230123
  6. LOSARTAN [Concomitant]
     Active Substance: LOSARTAN\LOSARTAN POTASSIUM
     Indication: Hypertension
     Dosage: 50 MG, 2 PILLS A DAY, STARTED 2 YEARS AGO
     Route: 048
  7. AZATHIOPRINE [Concomitant]
     Active Substance: AZATHIOPRINE
     Indication: Crohn^s disease
     Dosage: 50 MG, 3 PILLS A DAY, STARTED 10 YEARS AGO
     Route: 048
  8. BETAHISTINE [Concomitant]
     Active Substance: BETAHISTINE
     Indication: Labyrinthitis
     Dosage: 24 MG, 2 PILLS A DAY, STARTED 3 YEARS AGO
     Route: 048
  9. IRON POLYMALTOSE [Concomitant]
     Active Substance: IRON POLYMALTOSE
     Indication: Product used for unknown indication
     Dosage: ONE PILL DAILY
     Route: 048
  10. IRON POLYMALTOSE [Concomitant]
     Active Substance: IRON POLYMALTOSE
     Indication: Product used for unknown indication
     Dosage: TWO 6 MG INJECTIONS PER MONTH
     Route: 042
  11. CITONEURIN [CYANOCOBALAMIN;PYRIDOXINE HYDROCHLORIDE;THIAMINE HYDROCHLO [Concomitant]
     Indication: Product used for unknown indication
     Dosage: ONE PILL DAILY
     Route: 048
  12. CITONEURIN [CYANOCOBALAMIN;PYRIDOXINE HYDROCHLORIDE;THIAMINE HYDROCHLO [Concomitant]
     Indication: Product used for unknown indication
     Dosage: ONE 5000 IU INJECTION ONCE A MONTH
     Route: 042

REACTIONS (10)
  - Intestinal resection [Recovering/Resolving]
  - Eye haemorrhage [Unknown]
  - Visual impairment [Unknown]
  - Hypertension [Unknown]
  - Inflammation [Unknown]
  - Anaemia [Unknown]
  - Labyrinthitis [Unknown]
  - Product dose omission in error [Unknown]
  - Intentional dose omission [Unknown]
  - Intentional product use issue [Unknown]

NARRATIVE: CASE EVENT DATE: 20230926
